FAERS Safety Report 5091030-8 (Version None)
Quarter: 2006Q3

REPORT INFORMATION
  Report Type: 
  Country: None (occurrence: None)
  Receive Date: 20060829
  Receipt Date: 20060508
  Transmission Date: 20061208
  Serious: No
  Sender: FDA-Public Use
  Company Number: 06US03496

PATIENT

DRUGS (3)
  1. ACYCLOVIR [Suspect]
  2. PREDNISONE TAB [Suspect]
  3. XELODA [Suspect]

REACTIONS (2)
  - AGEUSIA [None]
  - OEDEMA PERIPHERAL [None]
